FAERS Safety Report 7075505-8 (Version None)
Quarter: 2010Q4

REPORT INFORMATION
  Report Type: 
  Country: None (occurrence: None)
  Receive Date: 20101030
  Receipt Date: 20100930
  Transmission Date: 20110411
  Serious: No
  Sender: FDA-Public Use
  Company Number: US-WYE-H17923710

PATIENT
  Sex: Female
  Weight: 120.31 kg

DRUGS (8)
  1. PRISTIQ [Suspect]
     Indication: DEPRESSION
     Dates: start: 20100901, end: 20100927
  2. PRISTIQ [Suspect]
     Dates: start: 20100929
  3. TOPAMAX [Concomitant]
  4. KLONOPIN [Concomitant]
  5. AMBIEN [Concomitant]
  6. REMERON [Concomitant]
  7. CRESTOR [Concomitant]
  8. OMEPRAZOLE [Concomitant]

REACTIONS (4)
  - CONDITION AGGRAVATED [None]
  - INSOMNIA [None]
  - PALPITATIONS [None]
  - TREMOR [None]
